FAERS Safety Report 8572798-2 (Version None)
Quarter: 2012Q3

REPORT INFORMATION
  Report Type: 
  Country: None (occurrence: None)
  Receive Date: 20120806
  Receipt Date: 20120731
  Transmission Date: 20120928
  Serious: Yes (Other)
  Sender: FDA-Public Use
  Company Number: US-GILEAD-2012-0052018

PATIENT
  Sex: Male

DRUGS (23)
  1. LETAIRIS [Suspect]
     Dosage: 10 MG, UNK
     Route: 048
     Dates: start: 20101012, end: 20120224
  2. IMURAN [Concomitant]
     Dosage: UNK
     Dates: end: 20120302
  3. CYANOCOBALAMIN [Concomitant]
  4. INSULIN NPH                        /01223208/ [Concomitant]
  5. AZATHIOPRINE SODIUM [Suspect]
  6. ASPIRIN [Concomitant]
  7. LETAIRIS [Suspect]
     Indication: PULMONARY FIBROSIS
     Dosage: 5 MG, UNK
     Route: 048
     Dates: start: 20120316, end: 20120624
  8. METFORMIN HYDROCHLORIDE [Concomitant]
     Dosage: UNK
     Dates: end: 20120223
  9. DOXYCYCLINE HCL [Concomitant]
  10. FOLIC ACID [Concomitant]
  11. FUROSEMIDE [Concomitant]
  12. IPRATROPIUM BROMIDE [Concomitant]
  13. PYRIDOXINE HCL [Concomitant]
  14. TOCOPHERYL ACETATE [Concomitant]
  15. OXYGEN [Concomitant]
  16. LETAIRIS [Suspect]
     Indication: PULMONARY HYPERTENSION
     Dosage: 10 UNK, UNK
     Route: 048
     Dates: start: 20120624
  17. POTASSIUM CHLORIDE [Concomitant]
  18. ATORVASTATIN [Suspect]
     Dosage: UNK
     Dates: end: 20120223
  19. ASCORBIC ACID [Concomitant]
  20. REGULAR INSULIN [Concomitant]
  21. PREDNISONE [Concomitant]
  22. BENZONATATE [Concomitant]
  23. GUAIFENESIN/CODEINE [Concomitant]

REACTIONS (8)
  - CRYPTOGENIC CIRRHOSIS [None]
  - ABNORMAL LOSS OF WEIGHT [None]
  - VOMITING [None]
  - JAUNDICE [None]
  - NON-ALCOHOLIC STEATOHEPATITIS [None]
  - VIRAL INFECTION [None]
  - DECREASED APPETITE [None]
  - ABDOMINAL PAIN [None]
